FAERS Safety Report 7178818-4 (Version None)
Quarter: 2010Q4

REPORT INFORMATION
  Report Type: 
  Country: None (occurrence: None)
  Receive Date: 20101221
  Receipt Date: 20101217
  Transmission Date: 20110411
  Serious: Yes (Other)
  Sender: FDA-Public Use
  Company Number: US-CEPHALON-2010006509

PATIENT
  Sex: Male
  Weight: 86 kg

DRUGS (3)
  1. PROVIGIL [Suspect]
     Indication: SLEEP APNOEA SYNDROME
     Route: 048
     Dates: start: 20070101, end: 20080101
  2. PROVIGIL [Suspect]
     Indication: SOMNOLENCE
  3. BLOOD PRESSURE MEDICATIONS [Concomitant]
     Indication: HYPERTENSION

REACTIONS (3)
  - FEELING JITTERY [None]
  - INSOMNIA [None]
  - RENAL FAILURE CHRONIC [None]
